FAERS Safety Report 7930245-5 (Version None)
Quarter: 2011Q4

REPORT INFORMATION
  Report Type: 
  Country: None (occurrence: None)
  Receive Date: 20111121
  Receipt Date: 20110819
  Transmission Date: 20120403
  Serious: No
  Sender: FDA-Public Use
  Company Number: US-BAYER-2011-079497

PATIENT
  Age: 63 Year
  Sex: Female
  Weight: 75 kg

DRUGS (7)
  1. ASCORBIC ACID [Concomitant]
  2. ALEVE (CAPLET) [Suspect]
     Indication: HEADACHE
     Dosage: 4 DF, ONCE
     Dates: start: 20110819, end: 20110819
  3. BENICAR [Concomitant]
  4. CITRACAL [Concomitant]
  5. VITAMIN D [Concomitant]
  6. FISH OIL [Concomitant]
  7. CITALOPRAM HYDROBROMIDE [Concomitant]

REACTIONS (2)
  - NERVOUSNESS [None]
  - NO ADVERSE EVENT [None]
